FAERS Safety Report 5107195-5 (Version None)
Quarter: 2006Q3

REPORT INFORMATION
  Report Type: 
  Country: None (occurrence: None)
  Receive Date: 20060913
  Receipt Date: 20060830
  Transmission Date: 20061208
  Serious: Yes (Other)
  Sender: FDA-Public Use
  Company Number: 2006BH012741

PATIENT
  Age: 77 Year
  Sex: Female

DRUGS (17)
  1. REGLAN [Suspect]
     Indication: PROPHYLAXIS OF NAUSEA AND VOMITING
     Dosage: 10 MG; ONCE; IV
     Route: 042
     Dates: start: 20060508, end: 20060508
  2. ETOMIDATE [Concomitant]
  3. SUCCINYLCHOLINE [Concomitant]
  4. NITROGLYCERIN [Concomitant]
  5. TRIMOX [Concomitant]
  6. NAPROXEN [Concomitant]
  7. ELAVIL [Concomitant]
  8. ASPIRIN [Concomitant]
  9. SYNTHROID [Concomitant]
  10. TENORMIN [Concomitant]
  11. MEVACOR [Concomitant]
  12. NIACIN [Concomitant]
  13. ACIDOPHILUS [Concomitant]
  14. MULTIVITAMIN [Concomitant]
  15. VITAMINS B6 [Concomitant]
  16. VITAMIN B-12 [Concomitant]
  17. FOLIC ACID [Concomitant]

REACTIONS (13)
  - ASTHENIA [None]
  - BLOOD MAGNESIUM ABNORMAL [None]
  - BLOOD POTASSIUM ABNORMAL [None]
  - GAIT DISTURBANCE [None]
  - GASTROINTESTINAL DISORDER [None]
  - HEART INJURY [None]
  - HEART RATE IRREGULAR [None]
  - PARALYSIS [None]
  - PARKINSONISM [None]
  - RESPIRATORY ARREST [None]
  - TREMOR [None]
  - TROPONIN INCREASED [None]
  - UNWANTED AWARENESS DURING ANAESTHESIA [None]
